FAERS Safety Report 10658528 (Version 1)
Quarter: 2014Q4

REPORT INFORMATION
  Report Type: Spontaneous
  Country: US (occurrence: US)
  Receive Date: 20141217
  Receipt Date: 20141217
  Transmission Date: 20150529
  Serious: No
  Sender: FDA-Public Use
  Company Number: US-GLAXOSMITHKLINE-A1068974A

PATIENT

DRUGS (1)
  1. VOTRIENT [Suspect]
     Active Substance: PAZOPANIB HYDROCHLORIDE
     Indication: RENAL CANCER
     Dosage: 200 MG TABLET, 800 MG DAILY (TAKING 1 TABLET 4 TIMES DAILY-NOT PRESCRIBED)
     Route: 065
     Dates: start: 20130905

REACTIONS (2)
  - Diarrhoea [Unknown]
  - Drug administration error [Unknown]
